FAERS Safety Report 7636467-5 (Version None)
Quarter: 2011Q3

REPORT INFORMATION
  Report Type: 
  Country: None (occurrence: None)
  Receive Date: 20110726
  Receipt Date: 20110720
  Transmission Date: 20111222
  Serious: Yes (Hospitalization)
  Sender: FDA-Public Use
  Company Number: CA-SANOFI-AVENTIS-2011SA046936

PATIENT
  Age: 39 Year
  Sex: Female

DRUGS (9)
  1. HUMULIN N [Concomitant]
  2. SYNTHROID [Concomitant]
     Route: 048
  3. SOLOSTAR [Suspect]
  4. REACTINE /CAN/ [Concomitant]
     Route: 048
  5. LANTUS [Suspect]
     Route: 058
     Dates: start: 20090101
  6. EFFEXOR [Concomitant]
     Dosage: 75MG/150MG
     Route: 048
  7. VITAMIN D [Concomitant]
     Route: 048
  8. CALCIUM ACETATE [Concomitant]
     Route: 048
  9. ALL OTHER THERAPEUTIC PRODUCTS [Concomitant]

REACTIONS (2)
  - SEPSIS [None]
  - URTICARIA [None]
